FAERS Safety Report 5031350-6 (Version None)
Quarter: 2006Q2

REPORT INFORMATION
  Report Type: 
  Country: None (occurrence: None)
  Receive Date: 20060616
  Receipt Date: 20060608
  Transmission Date: 20061013
  Serious: Yes (Hospitalization)
  Sender: FDA-Public Use
  Company Number: 2006-06-0430

PATIENT
  Age: 52 Year
  Sex: Female

DRUGS (2)
  1. PEG-INTRON [Suspect]
     Dosage: 120 MCG QW SUBCUTANEOUS
     Route: 058
  2. REBETOL [Suspect]
     Dosage: 5 PER DAY ORAL
     Route: 048

REACTIONS (5)
  - CYANOSIS [None]
  - FEELING COLD [None]
  - HYPERHIDROSIS [None]
  - MYALGIA [None]
  - PALPITATIONS [None]
